FAERS Safety Report 6530228-6 (Version None)
Quarter: 2010Q1

REPORT INFORMATION
  Report Type: 
  Country: None (occurrence: None)
  Receive Date: 20100107
  Receipt Date: 20091227
  Transmission Date: 20100710
  Serious: Yes (Other)
  Sender: FDA-Public Use
  Company Number: SE-PFIZER INC-2009301126

PATIENT
  Sex: Male

DRUGS (2)
  1. ZOLOFT [Suspect]
     Indication: PANIC ATTACK
     Dosage: 50 MG, UNK
     Route: 048
     Dates: start: 20091001
  2. CITALOPRAM [Concomitant]
     Indication: PANIC ATTACK
     Dosage: 10 MG, UNK
     Route: 048
     Dates: start: 20090901

REACTIONS (12)
  - ABNORMAL DREAMS [None]
  - ANXIETY [None]
  - CRYING [None]
  - DIZZINESS [None]
  - DRUG INEFFECTIVE [None]
  - EMOTIONAL DISORDER [None]
  - FACIAL PALSY [None]
  - FEELING ABNORMAL [None]
  - HEADACHE [None]
  - HYPERHIDROSIS [None]
  - SOCIAL FEAR [None]
  - VISION BLURRED [None]
